FAERS Safety Report 5004954-4 (Version None)
Quarter: 2006Q1

REPORT INFORMATION
  Report Type: 
  Country: None (occurrence: None)
  Receive Date: 20060321
  Receipt Date: 20060118
  Transmission Date: 20060701
  Serious: No
  Sender: FDA-Public Use
  Company Number: YPA20050417

PATIENT
  Sex: Female

DRUGS (7)
  1. VESICARE [Suspect]
     Indication: CYSTOCELE
     Dosage: SEE IMAGE
     Route: 048
     Dates: start: 20050501, end: 20050101
  2. VESICARE [Suspect]
     Indication: CYSTOCELE
     Dosage: SEE IMAGE
     Route: 048
     Dates: start: 20050101
  3. VITAMINS [Concomitant]
  4. ACTOS /CAN/(PIOGLITAZONE HYDROCHLORIDE) [Concomitant]
  5. BLOOD PRESSURE MEDICATION [Concomitant]
  6. LESCOL [Concomitant]
  7. DIURETIC [Concomitant]

REACTIONS (2)
  - BACK PAIN [None]
  - DRUG INEFFECTIVE [None]
